FAERS Safety Report 15500593 (Version 1)
Quarter: 2018Q4

REPORT INFORMATION
  Report Type: Spontaneous
  Country: US (occurrence: US)
  Receive Date: 20181015
  Receipt Date: 20181015
  Transmission Date: 20190205
  Serious: No
  Sender: FDA-Public Use
  Company Number: US-TAKEDA-2018TUS029578

PATIENT
  Age: 40 Year
  Sex: Female

DRUGS (1)
  1. TRINTELLIX [Suspect]
     Active Substance: VORTIOXETINE HYDROBROMIDE
     Indication: PRODUCT USED FOR UNKNOWN INDICATION
     Dosage: UNK UNK, QD
     Route: 048
     Dates: start: 20181003, end: 20181004

REACTIONS (5)
  - Swollen tongue [Unknown]
  - Urticaria [Unknown]
  - Pruritus [Unknown]
  - Wrong technique in product usage process [Unknown]
  - Confusional state [Unknown]

NARRATIVE: CASE EVENT DATE: 20181003
